FAERS Safety Report 8197733-0 (Version None)
Quarter: 2012Q1

REPORT INFORMATION
  Report Type: 
  Country: None (occurrence: None)
  Receive Date: 20120309
  Receipt Date: 20120227
  Transmission Date: 20120608
  Serious: Yes (Hospitalization)
  Sender: FDA-Public Use
  Company Number: DE-JNJFOC-20120211778

PATIENT
  Age: 22 Year
  Sex: Male
  Weight: 61.2 kg

DRUGS (10)
  1. REMICADE [Suspect]
     Indication: CROHN'S DISEASE
     Route: 042
     Dates: start: 20070401
  2. REMICADE [Suspect]
     Route: 042
     Dates: end: 20070701
  3. REMICADE [Suspect]
     Route: 042
     Dates: start: 20070611
  4. ALL OTHER THERAPEUTIC PRODUCTS [Concomitant]
     Indication: MALABSORPTION
     Dates: start: 20110301
  5. IRON [Concomitant]
     Indication: ANAEMIA
  6. PREDNISONE TAB [Concomitant]
  7. PREDNISONE TAB [Concomitant]
     Indication: CROHN'S DISEASE
  8. ADALIMUMAB [Concomitant]
     Dates: start: 20090201, end: 20090401
  9. REMICADE [Suspect]
     Route: 042
     Dates: start: 20070308
  10. PLACEBO [Concomitant]
     Dates: start: 20090201, end: 20090401

REACTIONS (4)
  - MALABSORPTION [None]
  - ANAPHYLACTIC REACTION [None]
  - ILEECTOMY [None]
  - INFUSION RELATED REACTION [None]
